FAERS Safety Report 21363711 (Version 2)
Quarter: 2023Q1

REPORT INFORMATION
  Report Type: Spontaneous
  Country: None (occurrence: US)
  Receive Date: 20220922
  Receipt Date: 20230111
  Transmission Date: 20230418
  Serious: Yes (Other)
  Sender: FDA-Public Use
  Company Number: US-Imprimis NJOF-2133079

PATIENT

DRUGS (1)
  1. MKO MELT DOSE PACK [Suspect]
     Active Substance: KETAMINE HYDROCHLORIDE\MIDAZOLAM\ONDANSETRON HYDROCHLORIDE ANHYDROUS
     Route: 060

REACTIONS (1)
  - Sedation complication [Unknown]
